FAERS Safety Report 8946693 (Version 2)
Quarter: 2013Q1

REPORT INFORMATION
  Report Type: Spontaneous
  Country: US (occurrence: US)
  Receive Date: 20121204
  Receipt Date: 20130102
  Transmission Date: 20140127
  Serious: No
  Sender: FDA-Public Use
  Company Number: US-AMGEN-USASP2012076930

PATIENT
  Age: 40 Year
  Sex: Male
  Weight: 108.84 kg

DRUGS (1)
  1. ENBREL [Suspect]
     Indication: PSORIATIC ARTHROPATHY
     Dosage: 50 MG/ML, Q2WK
     Route: 058
     Dates: start: 20121016, end: 20121116

REACTIONS (1)
  - Dizziness [Recovered/Resolved]
